FAERS Safety Report 5715982-5 (Version None)
Quarter: 2008Q2

REPORT INFORMATION
  Report Type: 
  Country: None (occurrence: None)
  Receive Date: 20080424
  Receipt Date: 20080415
  Transmission Date: 20081010
  Serious: Yes (Death, Hospitalization)
  Sender: FDA-Public Use
  Company Number: ES-ELI_LILLY_AND_COMPANY-ES200804004156

PATIENT
  Age: 61 Year
  Sex: Male

DRUGS (3)
  1. FORTEO [Suspect]
     Indication: OSTEOPOROSIS
     Dosage: 20 UG, UNKNOWN
     Route: 058
     Dates: start: 20070701, end: 20080101
  2. CHEMOTHERAPEUTICS NOS [Concomitant]
     Dosage: UNK, UNKNOWN
     Route: 065
  3. ANTIDEPRESSANTS [Concomitant]
     Dosage: UNK, UNKNOWN
     Route: 065

REACTIONS (1)
  - OESOPHAGEAL CARCINOMA [None]
